FAERS Safety Report 4556805-X (Version None)
Quarter: 2005Q1

REPORT INFORMATION
  Report Type: 
  Country: None (occurrence: None)
  Receive Date: 20050118
  Receipt Date: 20050111
  Transmission Date: 20050727
  Serious: Yes (Hospitalization)
  Sender: FDA-Public Use
  Company Number: S04-USA-06784-01

PATIENT
  Age: 42 Year
  Sex: Male

DRUGS (5)
  1. LEXAPRO [Suspect]
     Indication: ANXIETY
     Dosage: 10 MG QD PO
     Route: 048
     Dates: start: 20031001, end: 20040614
  2. LEXAPRO [Suspect]
     Indication: DEPRESSION
     Dosage: 10 MG QD PO
     Route: 048
     Dates: start: 20031001, end: 20040614
  3. SEROQUEL [Suspect]
     Indication: AGITATION
     Dosage: 400 MG QD
     Dates: start: 20031201, end: 20040614
  4. SEROQUEL [Suspect]
     Indication: MOOD SWINGS
     Dosage: 400 MG QD
     Dates: start: 20031201, end: 20040614
  5. AMBIEN [Concomitant]

REACTIONS (4)
  - ERECTILE DYSFUNCTION [None]
  - POST PROCEDURAL COMPLICATION [None]
  - PRIAPISM [None]
  - THROMBOSIS [None]
